FAERS Safety Report 6439795-4 (Version None)
Quarter: 2009Q4

REPORT INFORMATION
  Report Type: 
  Country: None (occurrence: None)
  Receive Date: 20091113
  Receipt Date: 20091104
  Transmission Date: 20100525
  Serious: Yes (Hospitalization)
  Sender: FDA-Public Use
  Company Number: JP-MERCK-0911USA01190

PATIENT
  Age: 83 Year
  Sex: Female
  Weight: 46 kg

DRUGS (8)
  1. PEPCID [Suspect]
     Route: 048
  2. CIFENLINE [Suspect]
     Route: 065
     Dates: start: 20080212
  3. FUROSEMIDE [Concomitant]
     Route: 065
  4. SPIRONOLACTONE [Concomitant]
     Route: 065
  5. METILDIGOXIN [Concomitant]
     Route: 065
  6. ALLOPURINOL [Concomitant]
     Route: 065
  7. REBAMIPIDE [Concomitant]
     Route: 065
  8. WARFARIN [Concomitant]
     Route: 065

REACTIONS (5)
  - BLOOD PRESSURE SYSTOLIC INCREASED [None]
  - BUNDLE BRANCH BLOCK RIGHT [None]
  - DRUG LEVEL INCREASED [None]
  - HYPOGLYCAEMIA [None]
  - RENAL IMPAIRMENT [None]
